FAERS Safety Report 20083631 (Version 7)
Quarter: 2023Q1

REPORT INFORMATION
  Report Type: Spontaneous
  Country: PT (occurrence: PT)
  Receive Date: 20211118
  Receipt Date: 20230127
  Transmission Date: 20230418
  Serious: Yes (Hospitalization, Disabling, Other)
  Sender: FDA-Public Use
  Company Number: PT-AUROBINDO-AUR-APL-2021-045711

PATIENT
  Age: 56 Year
  Sex: Female

DRUGS (3)
  1. PROPRANOLOL [Interacting]
     Active Substance: PROPRANOLOL HYDROCHLORIDE
     Indication: Product used for unknown indication
     Dosage: 40 MILLIGRAM, ONCE A DAY
     Route: 065
  2. QUETIAPINE [Interacting]
     Active Substance: QUETIAPINE
     Indication: Anxiety
     Dosage: 25 MILLIGRAM, ONCE A DAY
     Route: 048
  3. SERTRALINE HYDROCHLORIDE [Interacting]
     Active Substance: SERTRALINE HYDROCHLORIDE
     Indication: Anxiety
     Dosage: 50 MILLIGRAM, ONCE A DAY
     Route: 048

REACTIONS (10)
  - Seizure [Unknown]
  - Hyponatraemia [Recovered/Resolved]
  - Drug interaction [Recovering/Resolving]
  - Vision blurred [Unknown]
  - Polydipsia [Unknown]
  - Hyponatraemic seizure [Recovered/Resolved]
  - Generalised tonic-clonic seizure [Recovering/Resolving]
  - Asthenia [Unknown]
  - Muscular weakness [Unknown]
  - Diarrhoea [Unknown]
